FAERS Safety Report 8334407-7 (Version None)
Quarter: 2012Q2

REPORT INFORMATION
  Report Type: 
  Country: None (occurrence: None)
  Receive Date: 20120503
  Receipt Date: 20110323
  Transmission Date: 20120825
  Serious: No
  Sender: FDA-Public Use
  Company Number: US-TEVA-2011001371

PATIENT
  Sex: Female

DRUGS (5)
  1. HYDROCHLOROTHIAZIDE [Concomitant]
  2. LISINOPRIL [Concomitant]
  3. FLUPAMID [Concomitant]
  4. TOPROL-XL [Concomitant]
  5. NUVIGIL [Suspect]
     Indication: SOMNOLENCE
     Dosage: 250 MILLIGRAM;
     Route: 048
     Dates: start: 20110225, end: 20110318

REACTIONS (1)
  - BLOOD PRESSURE INCREASED [None]
